FAERS Safety Report 4415862-1 (Version None)
Quarter: 2004Q3

REPORT INFORMATION
  Report Type: 
  Country: None (occurrence: None)
  Receive Date: 20040805
  Receipt Date: 20040804
  Transmission Date: 20050211
  Serious: Yes (Other)
  Sender: FDA-Public Use
  Company Number: PHRM2004FR02500

PATIENT
  Age: 27 Year
  Sex: Female
  Weight: 40 kg

DRUGS (1)
  1. LAMISIL [Suspect]
     Dosage: 1 TAB/DAY
     Route: 048
     Dates: start: 20040508, end: 20040511

REACTIONS (3)
  - ABDOMINAL PAIN [None]
  - ANAEMIA [None]
  - HAEMOGLOBIN DECREASED [None]
